FAERS Safety Report 11247140 (Version 3)
Quarter: 2015Q3

REPORT INFORMATION
  Report Type: Spontaneous
  Country: US (occurrence: None)
  Receive Date: 20150706
  Receipt Date: 20150805
  Transmission Date: 20151125
  Serious: Yes (Death, Other)
  Sender: FDA-Public Use
  Company Number: ADR-2015-01263

PATIENT
  Age: 12 Year
  Sex: Male
  Weight: 30.84 kg

DRUGS (17)
  1. ZYRTEC [Concomitant]
     Active Substance: CETIRIZINE HYDROCHLORIDE
  2. VITAMIN D [Concomitant]
     Active Substance: CHOLECALCIFEROL
  3. DIAZEPAM. [Concomitant]
     Active Substance: DIAZEPAM
  4. PHENOBARBITAL. [Concomitant]
     Active Substance: PHENOBARBITAL
  5. MIRALAX [Concomitant]
     Active Substance: POLYETHYLENE GLYCOL 3350
  6. BACLOFEN. [Concomitant]
     Active Substance: BACLOFEN
     Dosage: VIA G-TUBE
  7. ERYTHROMYCIN. [Concomitant]
     Active Substance: ERYTHROMYCIN
  8. ALBUTEROL. [Concomitant]
     Active Substance: ALBUTEROL
  9. BENADRYL [Concomitant]
     Active Substance: DIPHENHYDRAMINE HYDROCHLORIDE
  10. PATANASE [Concomitant]
     Active Substance: OLOPATADINE HYDROCHLORIDE
  11. MILK OF MAGNESIA [Concomitant]
     Active Substance: MAGNESIUM HYDROXIDE
  12. AZITHROMYCIN [Concomitant]
     Active Substance: AZITHROMYCIN ANHYDROUS
  13. IBUPROFEN. [Concomitant]
     Active Substance: IBUPROFEN
  14. LIORESAL [Suspect]
     Active Substance: BACLOFEN
     Indication: MUSCLE SPASTICITY
  15. TYLENOL [Concomitant]
     Active Substance: ACETAMINOPHEN
  16. SUDAFED [Concomitant]
     Active Substance: PSEUDOEPHEDRINE HYDROCHLORIDE
  17. TRIAMCINOLONE [Concomitant]
     Active Substance: TRIAMCINOLONE

REACTIONS (6)
  - Respiratory failure [None]
  - Device issue [None]
  - Respiratory arrest [None]
  - Death [None]
  - Atelectasis [None]
  - Bronchitis chronic [None]

NARRATIVE: CASE EVENT DATE: 20150509
